FAERS Safety Report 16688315 (Version 1)
Quarter: 2019Q3

REPORT INFORMATION
  Report Type: Spontaneous
  Country: US (occurrence: US)
  Receive Date: 20190809
  Receipt Date: 20190809
  Transmission Date: 20191004
  Serious: Yes (Hospitalization)
  Sender: FDA-Public Use
  Company Number: US-PFIZER INC-2019339805

PATIENT
  Age: 62 Year
  Sex: Male
  Weight: 91 kg

DRUGS (2)
  1. LEVOXYL [Suspect]
     Active Substance: LEVOTHYROXINE SODIUM
     Indication: HYPOTHYROIDISM
     Dosage: UNK
  2. CYTOMEL [Suspect]
     Active Substance: LIOTHYRONINE SODIUM
     Dosage: UNK

REACTIONS (3)
  - Oedema [Recovered/Resolved with Sequelae]
  - Thyroxine abnormal [Unknown]
  - Dyspnoea [Unknown]

NARRATIVE: CASE EVENT DATE: 2019
